FAERS Safety Report 9252381 (Version 6)
Quarter: 2013Q4

REPORT INFORMATION
  Report Type: Report from Study
  Country: US (occurrence: US)
  Receive Date: 20130424
  Receipt Date: 20131129
  Transmission Date: 20140711
  Serious: Yes (Other)
  Sender: FDA-Public Use
  Company Number: PHEH2013US009039

PATIENT
  Age: 62 Year
  Sex: Female

DRUGS (5)
  1. GILENYA [Suspect]
     Indication: RELAPSING-REMITTING MULTIPLE SCLEROSIS
     Dosage: 0.5 MG, QD
     Route: 048
     Dates: start: 20130418, end: 20130418
  2. GILENYA [Suspect]
     Dosage: 0.5 MG, QD
     Route: 048
  3. ENABLEX [Concomitant]
     Indication: NEUROGENIC BLADDER
     Dosage: 15 MG, QD
     Route: 048
     Dates: start: 2010
  4. BACLOFEN [Concomitant]
     Indication: MUSCLE SPASTICITY
     Dosage: 26 MG, TID
     Route: 048
     Dates: start: 2010
  5. PREDNISONE [Concomitant]
     Indication: MULTIPLE SCLEROSIS RELAPSE
     Route: 048
     Dates: start: 20130405, end: 20130425

REACTIONS (8)
  - Sinus arrest [Recovered/Resolved]
  - Electrocardiogram abnormal [Recovered/Resolved]
  - Extrasystoles [Recovered/Resolved]
  - Sinus arrhythmia [Recovered/Resolved]
  - Blood pressure decreased [Recovered/Resolved]
  - Sinus bradycardia [Recovered/Resolved]
  - Atrioventricular block [Recovered/Resolved]
  - Hypersensitivity [Unknown]
